FAERS Safety Report 12340490 (Version 1)
Quarter: 2016Q2

REPORT INFORMATION
  Report Type: Spontaneous
  Country: US (occurrence: None)
  Receive Date: 20160505
  Receipt Date: 20160505
  Transmission Date: 20160815
  Serious: Yes (Other)
  Sender: FDA-Public Use
  Company Number: None

PATIENT
  Age: 70 Year
  Sex: Female
  Weight: 106.6 kg

DRUGS (7)
  1. VITAMIN E [Concomitant]
     Active Substance: .ALPHA.-TOCOPHEROL
  2. ANTBOI [Concomitant]
  3. CRANBERRY PILLS [Concomitant]
  4. WATER PILL [Concomitant]
     Active Substance: UNSPECIFIED INGREDIENT
  5. CLOPIDOGREL [Suspect]
     Active Substance: CLOPIDOGREL BISULFATE
     Indication: ANTICOAGULANT THERAPY
     Dosage: 1 TABLET IN THE MORNING TAKEN BY MOUTH
     Route: 048
     Dates: start: 20160416, end: 20160425
  6. IRON PILL [Concomitant]
     Active Substance: IRON
  7. OVLATINE BREAKFAST DRINK [Concomitant]

REACTIONS (2)
  - Blood count abnormal [None]
  - Muscular weakness [None]

NARRATIVE: CASE EVENT DATE: 20160425
